FAERS Safety Report 4337647-7 (Version None)
Quarter: 2004Q2

REPORT INFORMATION
  Report Type: 
  Country: None (occurrence: None)
  Receive Date: 20040408
  Receipt Date: 20040329
  Transmission Date: 20050107
  Serious: No
  Sender: FDA-Public Use
  Company Number: 04P-167-0255552-00

PATIENT
  Age: 40 Year
  Sex: Female
  Weight: 83.64 kg

DRUGS (4)
  1. MERIDIA [Suspect]
     Indication: WEIGHT DECREASED
     Dosage: 1 IN 1 D, UNKNOWN
     Dates: start: 20030704, end: 20040318
  2. SENNA [Concomitant]
  3. AMITRIPTYLINE HYDROCHLORIDE [Concomitant]
  4. ACETAMINOPHEN W/ CODEINE [Concomitant]

REACTIONS (5)
  - CONFUSIONAL STATE [None]
  - DIZZINESS [None]
  - HYPERHIDROSIS [None]
  - PALPITATIONS [None]
  - VISUAL DISTURBANCE [None]
